FAERS Safety Report 9251063 (Version 1)
Quarter: 2013Q2

REPORT INFORMATION
  Report Type: Spontaneous
  Country: JP (occurrence: JP)
  Receive Date: 20130424
  Receipt Date: 20130424
  Transmission Date: 20140414
  Serious: Yes (Other)
  Sender: FDA-Public Use
  Company Number: JP-ASTELLAS-2013JP005312

PATIENT
  Age: 40 Year
  Sex: Female

DRUGS (5)
  1. PROGRAF [Suspect]
     Indication: DERMATOMYOSITIS
     Dosage: 3 MG, UNKNOWN/D
     Route: 065
     Dates: start: 2012
  2. PROGRAF [Suspect]
     Indication: RHEUMATOID ARTHRITIS
  3. PREDNISOLONE [Concomitant]
     Indication: DERMATOMYOSITIS
     Dosage: 60 MG, UNKNOWN/D
     Route: 065
  4. PREDNISOLONE [Concomitant]
     Indication: SCLERODERMA
     Dosage: 17 MG, UNKNOWN/D
     Route: 065
     Dates: start: 2012
  5. PREDNISOLONE [Concomitant]
     Route: 065

REACTIONS (4)
  - Drug ineffective for unapproved indication [Unknown]
  - Drug ineffective [Unknown]
  - Dermatomyositis [Unknown]
  - Rheumatoid arthritis [Unknown]
